FAERS Safety Report 11106990 (Version 2)
Quarter: 2015Q2

REPORT INFORMATION
  Report Type: Spontaneous
  Country: US (occurrence: US)
  Receive Date: 20150512
  Receipt Date: 20150527
  Transmission Date: 20150821
  Serious: Yes (Hospitalization, Other)
  Sender: FDA-Public Use
  Company Number: US-APOTEX-2015AP009073

PATIENT
  Age: 76 Year
  Sex: Female

DRUGS (1)
  1. LITHIUM CARBONATE. [Suspect]
     Active Substance: LITHIUM CARBONATE
     Indication: BIPOLAR DISORDER
     Route: 065

REACTIONS (3)
  - Mental status changes [Recovered/Resolved]
  - Hypernatraemia [Unknown]
  - Nephrogenic diabetes insipidus [Recovering/Resolving]
